FAERS Safety Report 5351727-9 (Version None)
Quarter: 2007Q2

REPORT INFORMATION
  Report Type: 
  Country: None (occurrence: None)
  Receive Date: 20070521
  Receipt Date: 20070222
  Transmission Date: 20071010
  Serious: No
  Sender: FDA-Public Use
  Company Number: WAES 0702USA04159

PATIENT
  Age: 60 Year
  Sex: Male

DRUGS (2)
  1. JANUVIA [Suspect]
     Dosage: PO
     Route: 048
  2. INSULIN [Concomitant]

REACTIONS (1)
  - HEPATIC ENZYME INCREASED [None]
